FAERS Safety Report 13450067 (Version 1)
Quarter: 2017Q2

REPORT INFORMATION
  Report Type: Spontaneous
  Country: US (occurrence: US)
  Receive Date: 20170417
  Receipt Date: 20170417
  Transmission Date: 20170830
  Serious: No
  Sender: FDA-Public Use
  Company Number: US-BION-20160591

PATIENT
  Age: 74 Year
  Sex: Female
  Weight: 71.21 kg

DRUGS (3)
  1. TYLENOL [Concomitant]
     Active Substance: ACETAMINOPHEN
  2. ALEVE [Suspect]
     Active Substance: NAPROXEN SODIUM
     Dosage: AS NEEDED
     Route: 048
     Dates: end: 20161005
  3. DEXILANT [Concomitant]
     Active Substance: DEXLANSOPRAZOLE

REACTIONS (4)
  - Product use in unapproved indication [Unknown]
  - Poor quality drug administered [Unknown]
  - Product physical issue [Unknown]
  - Product taste abnormal [Unknown]
